FAERS Safety Report 7366084-6 (Version None)
Quarter: 2011Q1

REPORT INFORMATION
  Report Type: 
  Country: None (occurrence: None)
  Receive Date: 20110322
  Receipt Date: 20110307
  Transmission Date: 20110831
  Serious: Yes (Hospitalization)
  Sender: FDA-Public Use
  Company Number: NL-MEDIMMUNE-MEDI-0012823

PATIENT
  Sex: Male
  Weight: 3.04 kg

DRUGS (4)
  1. SYNAGIS [Suspect]
     Route: 051
     Dates: start: 20101018, end: 20101018
  2. SYNAGIS [Suspect]
     Route: 051
     Dates: start: 20101115, end: 20101115
  3. SYNAGIS [Suspect]
     Route: 051
     Dates: start: 20110207, end: 20110207
  4. SYNAGIS [Suspect]
     Route: 051
     Dates: start: 20110307, end: 20110307

REACTIONS (10)
  - EYE MOVEMENT DISORDER [None]
  - INFANTILE SPITTING UP [None]
  - OLIGODIPSIA [None]
  - IRON DEFICIENCY ANAEMIA [None]
  - FEBRILE CONVULSION [None]
  - ASTHENIA [None]
  - PYREXIA [None]
  - MALAISE [None]
  - FEEDING DISORDER NEONATAL [None]
  - POLLAKIURIA [None]
